FAERS Safety Report 7770136-6 (Version None)
Quarter: 2011Q3

REPORT INFORMATION
  Report Type: 
  Country: None (occurrence: None)
  Receive Date: 20110922
  Receipt Date: 20090717
  Transmission Date: 20111222
  Serious: No
  Sender: FDA-Public Use
  Company Number: US-ASTRAZENECA-2007UW15975

PATIENT
  Age: 11102 Day
  Sex: Male
  Weight: 106.6 kg

DRUGS (25)
  1. SEROQUEL [Suspect]
     Route: 048
     Dates: start: 20021122
  2. TRESADONE [Concomitant]
  3. SEROQUEL [Suspect]
     Indication: DEPRESSION
     Route: 048
     Dates: start: 19910101
  4. ABILIFY [Concomitant]
     Dates: start: 20020101
  5. SEROQUEL [Suspect]
     Route: 048
     Dates: start: 20021122
  6. PAXIL [Concomitant]
     Dates: start: 20020101
  7. CLEXA [Concomitant]
     Dates: start: 20020101
  8. SEROQUEL [Suspect]
     Dosage: 600 MG - 100 MG
     Route: 048
     Dates: start: 20020401, end: 20040601
  9. CLONAZEPAM [Concomitant]
     Dates: start: 20020917
  10. SEROQUEL [Suspect]
     Dosage: 600 MG - 100 MG
     Route: 048
     Dates: start: 20020401, end: 20040601
  11. ROBAXIN [Concomitant]
     Dates: start: 20020101
  12. SEROQUEL [Suspect]
     Indication: ANXIETY
     Route: 048
     Dates: start: 19910101
  13. SEROQUEL [Suspect]
     Dosage: 600 MG - 100 MG
     Route: 048
     Dates: start: 20020401, end: 20040601
  14. SEROQUEL [Suspect]
     Dosage: 25-200 MG
     Route: 048
     Dates: start: 20041124, end: 20060127
  15. PROZAC [Concomitant]
     Route: 048
     Dates: start: 20030121
  16. CLORAZEPATE DIPOTASSIUM [Concomitant]
     Indication: ANXIETY
     Dosage: PRN
     Route: 048
     Dates: start: 20021122
  17. SEROQUEL [Suspect]
     Indication: AFFECTIVE DISORDER
     Route: 048
     Dates: start: 19910101
  18. CLOZAPINE [Concomitant]
  19. PROZAC [Concomitant]
     Dates: start: 20020101
  20. AMBIEN [Concomitant]
     Dates: start: 20020917
  21. AMBIEN [Concomitant]
     Route: 048
     Dates: start: 20021122
  22. SEROQUEL [Suspect]
     Route: 048
     Dates: start: 20021122
  23. SEROQUEL [Suspect]
     Dosage: 25-200 MG
     Route: 048
     Dates: start: 20041124, end: 20060127
  24. SEROQUEL [Suspect]
     Dosage: 25-200 MG
     Route: 048
     Dates: start: 20041124, end: 20060127
  25. NEURONTIN [Concomitant]
     Dates: start: 20020917

REACTIONS (6)
  - ACCIDENT AT WORK [None]
  - BLOOD TRIGLYCERIDES INCREASED [None]
  - TYPE 2 DIABETES MELLITUS [None]
  - HYPERLIPIDAEMIA [None]
  - BLOOD CHOLESTEROL INCREASED [None]
  - BACK INJURY [None]
